FAERS Safety Report 11229882 (Version 1)
Quarter: 2015Q2

REPORT INFORMATION
  Report Type: Spontaneous
  Country: US (occurrence: US)
  Receive Date: 20150630
  Receipt Date: 20150630
  Transmission Date: 20150821
  Serious: No
  Sender: FDA-Public Use
  Company Number: US-009507513-1506USA013228

PATIENT
  Age: 13 Year
  Sex: Female

DRUGS (3)
  1. OMNARIS [Concomitant]
     Active Substance: CICLESONIDE
  2. CLARINEX [Suspect]
     Active Substance: DESLORATADINE
     Indication: UPPER-AIRWAY COUGH SYNDROME
     Dosage: 5 MG, QD
     Route: 048
  3. DULERA [Concomitant]
     Active Substance: FORMOTEROL FUMARATE DIHYDRATE\MOMETASONE FUROATE

REACTIONS (2)
  - Urticaria [Not Recovered/Not Resolved]
  - Upper-airway cough syndrome [Not Recovered/Not Resolved]
